FAERS Safety Report 7862277-X (Version None)
Quarter: 2011Q4

REPORT INFORMATION
  Report Type: 
  Country: None (occurrence: None)
  Receive Date: 20111026
  Receipt Date: 20111018
  Transmission Date: 20120403
  Serious: Yes (Death, Hospitalization)
  Sender: FDA-Public Use
  Company Number: 2011SP049155

PATIENT
  Age: 61 Year
  Sex: Male

DRUGS (25)
  1. ACTRAPID [Concomitant]
  2. BACTRIM [Concomitant]
  3. METHYLPREDNISOLONE [Concomitant]
  4. PANTOPRAZOLE [Concomitant]
  5. OXYCODONE HCL [Concomitant]
  6. OXYCONTIN LP [Concomitant]
  7. ZOFRAN [Concomitant]
  8. ACETAMINOPHEN [Concomitant]
  9. LANSOYL [Concomitant]
  10. LOVENOX [Suspect]
     Indication: PROPHYLAXIS
     Dosage: 1 DF;QD;SC
     Route: 058
     Dates: start: 20110804, end: 20110905
  11. SODIUM BICARBONATE [Concomitant]
  12. AMITRIPTYLINE HCL [Concomitant]
  13. NORMACOL [Concomitant]
  14. DEBRIDAT [Concomitant]
  15. COUMADIN [Concomitant]
  16. VALIUM [Concomitant]
  17. ACETAMINOPHEN [Concomitant]
  18. CLONAZEPAM [Concomitant]
  19. MICONAZOLE [Concomitant]
  20. OXAZEPAM [Concomitant]
  21. MYLAN [Concomitant]
  22. CITALOPRAM HYDROBROMIDE [Concomitant]
  23. TEMODAL [Suspect]
     Indication: MALIGNANT MELANOMA
     Dosage: 280 MG;QD;PO, 50 MG;QD;PO
     Route: 048
     Dates: start: 20110826, end: 20110829
  24. TEMODAL [Suspect]
     Indication: MALIGNANT MELANOMA
     Dosage: 280 MG;QD;PO, 50 MG;QD;PO
     Route: 048
     Dates: start: 20110727, end: 20110731
  25. LYRICA [Concomitant]

REACTIONS (7)
  - ALTERED STATE OF CONSCIOUSNESS [None]
  - THROMBOCYTOPENIA [None]
  - PNEUMONIA ASPIRATION [None]
  - RESPIRATORY DISORDER [None]
  - DYSPHAGIA [None]
  - CONVULSION [None]
  - LUNG DISORDER [None]
